FAERS Safety Report 8869419 (Version 1)
Quarter: 2012Q4

REPORT INFORMATION
  Report Type: 
  Country: US (occurrence: US)
  Receive Date: 20121026
  Receipt Date: 20121026
  Transmission Date: 20130627
  Serious: No
  Sender: FDA-Public Use
  Company Number: US-AMGEN-USASP2012042216

PATIENT
  Age: 34 Year
  Sex: Female

DRUGS (2)
  1. ENBREL [Suspect]
     Indication: RHEUMATOID ARTHRITIS
     Dates: start: 20110725, end: 20120130
  2. PLAQUENIL [Concomitant]
     Dosage: UNK

REACTIONS (5)
  - Depression [Recovered/Resolved]
  - Mood swings [Recovered/Resolved]
  - Migraine [Recovered/Resolved]
  - Adverse drug reaction [Not Recovered/Not Resolved]
  - Hypersensitivity [Recovered/Resolved]
